FAERS Safety Report 21628561 (Version 1)
Quarter: 2022Q4

REPORT INFORMATION
  Report Type: Report from Study
  Country: US (occurrence: US)
  Receive Date: 20221122
  Receipt Date: 20221122
  Transmission Date: 20230112
  Serious: No
  Sender: FDA-Public Use
  Company Number: US-ABBVIE-4173092

PATIENT
  Age: 51 Year
  Sex: Female

DRUGS (1)
  1. RINVOQ [Suspect]
     Active Substance: UPADACITINIB
     Indication: Ankylosing spondylitis
     Route: 048
     Dates: start: 20220902, end: 20221013

REACTIONS (4)
  - Aspartate aminotransferase abnormal [Recovering/Resolving]
  - Nasopharyngitis [Recovering/Resolving]
  - Blood lactate dehydrogenase abnormal [Recovering/Resolving]
  - Alanine aminotransferase abnormal [Recovering/Resolving]

NARRATIVE: CASE EVENT DATE: 20221001
